FAERS Safety Report 20626956 (Version 1)
Quarter: 2022Q1

REPORT INFORMATION
  Report Type: Spontaneous
  Country: US (occurrence: None)
  Receive Date: 20220322
  Receipt Date: 20220322
  Transmission Date: 20220423
  Serious: Yes (Hospitalization)
  Sender: FDA-Public Use
  Company Number: None

PATIENT
  Age: 25 Year
  Sex: Female

DRUGS (1)
  1. AIMOVIG [Suspect]
     Active Substance: ERENUMAB-AOOE
     Dosage: OTHER FREQUENCY : EVERY 30 DAYS;?
     Route: 058
     Dates: start: 20220208, end: 20220320

REACTIONS (3)
  - Headache [None]
  - Pyrexia [None]
  - Throat tightness [None]

NARRATIVE: CASE EVENT DATE: 20220320
